FAERS Safety Report 17884783 (Version 1)
Quarter: 2020Q2

REPORT INFORMATION
  Report Type: Spontaneous
  Country: US (occurrence: US)
  Receive Date: 20200611
  Receipt Date: 20200611
  Transmission Date: 20200714
  Serious: No
  Sender: FDA-Public Use
  Company Number: US-PFIZER INC-2019424363

PATIENT
  Age: 16 Year
  Sex: Male
  Weight: 65.77 kg

DRUGS (3)
  1. GENOTROPIN [Suspect]
     Active Substance: SOMATROPIN
     Dosage: 3.8 MG (3 TIMES A WEEK)
  2. GENOTROPIN [Suspect]
     Active Substance: SOMATROPIN
     Dosage: 3.8 MG, DAILY
  3. GENOTROPIN [Suspect]
     Active Substance: SOMATROPIN
     Dosage: 3.9 MG, DAILY

REACTIONS (4)
  - Weight increased [Unknown]
  - Product prescribing error [Unknown]
  - Device issue [Unknown]
  - Product dose omission [Unknown]
